FAERS Safety Report 5752957-4 (Version None)
Quarter: 2008Q2

REPORT INFORMATION
  Report Type: 
  Country: None (occurrence: None)
  Receive Date: 20080527
  Receipt Date: 20080512
  Transmission Date: 20081010
  Serious: Yes (Life-Threatening, Hospitalization, Other)
  Sender: FDA-Public Use
  Company Number: MEDI-0006543

PATIENT
  Age: 16 Month
  Sex: Female
  Weight: 12 kg

DRUGS (7)
  1. SYNAGIS [Suspect]
     Dosage: 1 IN 1 M, INTRAMUSCULAR; INTRAMUSCULAR; INTRAMUSCULAR; INTRAMUSCULAR; INTRAMUSCULAR; INTRAMUSCULAR
     Route: 030
     Dates: start: 20071023, end: 20071218
  2. SYNAGIS [Suspect]
     Dosage: 1 IN 1 M, INTRAMUSCULAR; INTRAMUSCULAR; INTRAMUSCULAR; INTRAMUSCULAR; INTRAMUSCULAR; INTRAMUSCULAR
     Route: 030
     Dates: start: 20071023
  3. SYNAGIS [Suspect]
     Dosage: 1 IN 1 M, INTRAMUSCULAR; INTRAMUSCULAR; INTRAMUSCULAR; INTRAMUSCULAR; INTRAMUSCULAR; INTRAMUSCULAR
     Route: 030
     Dates: start: 20071120
  4. SYNAGIS [Suspect]
     Dosage: 1 IN 1 M, INTRAMUSCULAR; INTRAMUSCULAR; INTRAMUSCULAR; INTRAMUSCULAR; INTRAMUSCULAR; INTRAMUSCULAR
     Route: 030
     Dates: start: 20080129
  5. SYNAGIS [Suspect]
     Dosage: 1 IN 1 M, INTRAMUSCULAR; INTRAMUSCULAR; INTRAMUSCULAR; INTRAMUSCULAR; INTRAMUSCULAR; INTRAMUSCULAR
     Route: 030
     Dates: start: 20080226
  6. SYNAGIS [Suspect]
     Dosage: 1 IN 1 M, INTRAMUSCULAR; INTRAMUSCULAR; INTRAMUSCULAR; INTRAMUSCULAR; INTRAMUSCULAR; INTRAMUSCULAR
     Route: 030
     Dates: start: 20080325
  7. ENZYME INFUSION [Concomitant]

REACTIONS (3)
  - BRONCHITIS [None]
  - PNEUMONIA [None]
  - RESPIRATORY SYNCYTIAL VIRUS INFECTION [None]
